FAERS Safety Report 6260509-5 (Version None)
Quarter: 2009Q3

REPORT INFORMATION
  Report Type: 
  Country: None (occurrence: None)
  Receive Date: 20090706
  Receipt Date: 20090617
  Transmission Date: 20100115
  Serious: Yes (Other)
  Sender: FDA-Public Use
  Company Number: NZ-DEXPHARM-20090934

PATIENT
  Sex: Female

DRUGS (1)
  1. HIBITANE ACTIVE SUBSTANCES: CHLORHEXIDINE [Suspect]
     Dosage: 1 % PERCENT TOPICAL
     Route: 061
     Dates: start: 19980101

REACTIONS (3)
  - ANAPHYLACTIC REACTION [None]
  - DRUG HYPERSENSITIVITY [None]
  - REACTION TO DRUG EXCIPIENTS [None]
